FAERS Safety Report 9781291 (Version 2)
Quarter: 2014Q1

REPORT INFORMATION
  Report Type: Report from Study
  Country: IT (occurrence: IT)
  Receive Date: 20131224
  Receipt Date: 20140206
  Transmission Date: 20141002
  Serious: Yes (Hospitalization, Other)
  Sender: FDA-Public Use
  Company Number: IT-MERCK-1312ITA010808

PATIENT
  Age: 67 Year
  Sex: Male
  Weight: 75 kg

DRUGS (11)
  1. DEXAMETHASONE [Suspect]
     Indication: PLASMA CELL MYELOMA
     Dosage: 20 MG ON DAYS 1, 2, 4, 5, 8, 9, 11 AND 12 EVERY 21 DAYS
     Route: 048
     Dates: start: 20130902, end: 20131022
  2. BLINDED THERAPY [Suspect]
     Indication: PLASMA CELL MYELOMA
     Dosage: DAYS 1, 4, 8, 11 EVERY 21 DAYS
     Route: 058
     Dates: start: 20130902, end: 20131014
  3. BORTEZOMIB [Suspect]
     Indication: PLASMA CELL MYELOMA
     Dosage: 1.3 MG/M2, ON DAYS 1, 4, 8 AND 11 EVERY 21 DAYS
     Route: 058
     Dates: start: 20130902, end: 20131021
  4. BISOPROLOL [Concomitant]
  5. LEVOFLOXACIN [Concomitant]
  6. ATORVASTATIN CALCIUM [Concomitant]
  7. CEFIXIME [Concomitant]
  8. CALCIUM GLUCONATE (+) CALCIUM LACTOBIONATE [Concomitant]
  9. EPOETIN ZETA [Concomitant]
  10. FUROSEMIDE [Concomitant]
  11. PANTOPRAZOLE [Concomitant]

REACTIONS (3)
  - Pyrexia [Recovered/Resolved]
  - Pancytopenia [Unknown]
  - Cough [Unknown]
